FAERS Safety Report 7297503-1 (Version None)
Quarter: 2011Q1

REPORT INFORMATION
  Report Type: 
  Country: None (occurrence: None)
  Receive Date: 20110216
  Receipt Date: 20110207
  Transmission Date: 20110831
  Serious: Yes (Life-Threatening, Hospitalization)
  Sender: FDA-Public Use
  Company Number: FR-PFIZER INC-2008156356

PATIENT
  Age: 64 Year
  Sex: Male

DRUGS (7)
  1. DALACIN [Suspect]
     Indication: PANNICULITIS
     Dosage: UNK
     Route: 048
     Dates: start: 20080918, end: 20080923
  2. PYOSTACINE [Concomitant]
  3. ORBENINE [Suspect]
     Indication: PANNICULITIS
     Dosage: 1 G, 3X/DAY
     Route: 048
     Dates: start: 20080926, end: 20080928
  4. AUGMENTIN '125' [Suspect]
     Dosage: UNK
     Dates: start: 20100303
  5. CIFLOX [Suspect]
     Indication: PANNICULITIS
     Dates: start: 20080918, end: 20080923
  6. AUGMENTIN '125' [Suspect]
     Indication: PANNICULITIS
     Dosage: 1 G, 2X/DAY
     Route: 048
     Dates: start: 20080916, end: 20080918
  7. FLAMMAZINE [Concomitant]
     Route: 061

REACTIONS (2)
  - DRUG ERUPTION [None]
  - TUBULOINTERSTITIAL NEPHRITIS [None]
